FAERS Safety Report 7013736-3 (Version None)
Quarter: 2010Q3

REPORT INFORMATION
  Report Type: 
  Country: None (occurrence: None)
  Receive Date: 20100924
  Receipt Date: 20100916
  Transmission Date: 20110219
  Serious: Yes (Other)
  Sender: FDA-Public Use
  Company Number: US-PFIZER INC-2010002871

PATIENT
  Sex: Male
  Weight: 76.6 kg

DRUGS (3)
  1. SUTENT [Suspect]
     Indication: RENAL CANCER STAGE IV
     Dosage: 50 MG, 1X/DAY
     Route: 048
     Dates: start: 20090601, end: 20091015
  2. SUTENT [Suspect]
     Dosage: 37.5 MG, 1X/DAY
     Route: 048
     Dates: start: 20091016, end: 20100215
  3. SUTENT [Suspect]
     Dosage: 25 MG, 1X/DAY
     Route: 048
     Dates: start: 20100301, end: 20100805

REACTIONS (6)
  - HEPATIC ENZYME INCREASED [None]
  - HYPOTHYROIDISM [None]
  - PALMAR-PLANTAR ERYTHRODYSAESTHESIA SYNDROME [None]
  - SKIN ULCER [None]
  - THYROID FUNCTION TEST ABNORMAL [None]
  - TONGUE BLISTERING [None]
